FAERS Safety Report 10265977 (Version 1)
Quarter: 2014Q2

REPORT INFORMATION
  Report Type: Spontaneous
  Country: US (occurrence: US)
  Receive Date: 20140627
  Receipt Date: 20140627
  Transmission Date: 20141212
  Serious: Yes (Other)
  Sender: FDA-Public Use
  Company Number: US-TEVA-490491USA

PATIENT
  Sex: Female
  Weight: 64.92 kg

DRUGS (6)
  1. FROVA [Concomitant]
     Indication: MIGRAINE
     Dosage: 30 MILLIGRAM DAILY;
  2. FIORINAL [Concomitant]
     Indication: MIGRAINE
     Dosage: PRN
  3. COPAXONE 40MG [Suspect]
     Indication: RELAPSING-REMITTING MULTIPLE SCLEROSIS
     Dosage: 120 MILLIGRAM DAILY;
     Dates: start: 201404
  4. FLUOXETINE [Concomitant]
     Indication: DEPRESSION
  5. FLUOXETINE [Concomitant]
     Indication: ANXIETY
  6. LIPITOR [Concomitant]
     Indication: HYPERCHOLESTEROLAEMIA

REACTIONS (6)
  - Urinary tract infection [Recovered/Resolved]
  - Affect lability [Not Recovered/Not Resolved]
  - Memory impairment [Unknown]
  - Movement disorder [Recovering/Resolving]
  - Rash erythematous [Not Recovered/Not Resolved]
  - Rash [Recovered/Resolved]
